FAERS Safety Report 5394008-X (Version None)
Quarter: 2007Q3

REPORT INFORMATION
  Report Type: 
  Country: None (occurrence: None)
  Receive Date: 20070723
  Receipt Date: 20070104
  Transmission Date: 20080115
  Serious: No
  Sender: FDA-Public Use
  Company Number: A0634819A

PATIENT
  Age: 62 Year
  Sex: Male

DRUGS (6)
  1. AVANDIA [Suspect]
     Route: 048
  2. BYETTA [Suspect]
     Dosage: 10MCG TWICE PER DAY
     Route: 058
     Dates: start: 20050101
  3. BYETTA [Suspect]
     Dosage: 5MCG TWICE PER DAY
     Route: 058
     Dates: start: 20050101, end: 20050101
  4. GLUCOPHAGE [Concomitant]
  5. LANTUS [Concomitant]
     Dates: end: 20050101
  6. HUMALOG [Concomitant]
     Dates: end: 20050101

REACTIONS (6)
  - ASTHENIA [None]
  - BLOOD GLUCOSE DECREASED [None]
  - DECREASED APPETITE [None]
  - DIZZINESS [None]
  - TREMOR [None]
  - WEIGHT DECREASED [None]
